FAERS Safety Report 9243026 (Version 1)
Quarter: 2013Q2

REPORT INFORMATION
  Report Type: Spontaneous
  Country: US (occurrence: US)
  Receive Date: 20130419
  Receipt Date: 20130419
  Transmission Date: 20140414
  Serious: Yes (Life-Threatening, Hospitalization, Other)
  Sender: FDA-Public Use
  Company Number: US-ASTRAZENECA-2013SE25578

PATIENT
  Age: 63 Year
  Sex: Male
  Weight: 76.2 kg

DRUGS (6)
  1. NEXIUM [Suspect]
     Indication: GASTROOESOPHAGEAL REFLUX DISEASE
     Route: 048
     Dates: start: 2009
  2. LISINOPRIL [Suspect]
     Indication: BLOOD PRESSURE ABNORMAL
     Route: 048
     Dates: start: 1996
  3. PREDNISONE [Concomitant]
     Indication: BRAIN OPERATION
     Route: 048
     Dates: start: 1996
  4. AMLODIPINE [Concomitant]
     Indication: BLOOD PRESSURE ABNORMAL
     Route: 048
     Dates: start: 1996
  5. ATORVASTATIN [Concomitant]
     Indication: BLOOD CHOLESTEROL INCREASED
     Route: 048
  6. LEVOTHYROXINE [Concomitant]
     Indication: BRAIN OPERATION
     Route: 048
     Dates: start: 1996

REACTIONS (7)
  - Apparent death [Unknown]
  - Brain abscess [Unknown]
  - Hypopituitarism [Unknown]
  - Hiatus hernia [Unknown]
  - Glucocorticoids decreased [Unknown]
  - Gastrooesophageal reflux disease [Unknown]
  - Off label use [Unknown]
